FAERS Safety Report 6422663-1 (Version None)
Quarter: 2009Q4

REPORT INFORMATION
  Report Type: 
  Country: None (occurrence: None)
  Receive Date: 20091102
  Receipt Date: 20091023
  Transmission Date: 20100525
  Serious: Yes (Other)
  Sender: FDA-Public Use
  Company Number: US-JNJFOC-20091008446

PATIENT
  Sex: Female

DRUGS (2)
  1. UNSPECIFIED FENTANYL MATRIX PATCH [Suspect]
     Indication: DRUG USE FOR UNKNOWN INDICATION
     Route: 062
  2. UNSPECIFIED FENTANYL RESERVIOR PATCH [Suspect]
     Indication: DRUG USE FOR UNKNOWN INDICATION
     Route: 062

REACTIONS (3)
  - ADVERSE EVENT [None]
  - DERMATITIS CONTACT [None]
  - HYPERSENSITIVITY [None]
